FAERS Safety Report 11132005 (Version 1)
Quarter: 2015Q2

REPORT INFORMATION
  Report Type: Spontaneous
  Country: None (occurrence: None)
  Receive Date: 20150521
  Receipt Date: 20150521
  Transmission Date: 20150821
  Serious: Yes (Hospitalization)
  Sender: FDA-Public Use
  Company Number: None

PATIENT
  Age: 62 Year
  Sex: Male
  Weight: 86.9 kg

DRUGS (1)
  1. CISPLATIN. [Suspect]
     Active Substance: CISPLATIN
     Dates: end: 20120529

REACTIONS (7)
  - Platelet count decreased [None]
  - Chest pain [None]
  - White blood cell count decreased [None]
  - Dyspnoea exertional [None]
  - Asthenia [None]
  - Tachycardia [None]
  - Haemoglobin decreased [None]

NARRATIVE: CASE EVENT DATE: 20141004
